FAERS Safety Report 9413667 (Version 3)
Quarter: 2013Q3

REPORT INFORMATION
  Report Type: Spontaneous
  Country: US (occurrence: None)
  Receive Date: 20130520
  Receipt Date: 20130822
  Transmission Date: 20140515
  Serious: Yes (Hospitalization)
  Sender: FDA-Public Use
  Company Number: ADR-2013-00717

PATIENT
  Age: 48 Year
  Sex: Female

DRUGS (1)
  1. LIORESAL [Suspect]
     Indication: MUSCLE SPASTICITY
     Dosage: 159.2 MCG/DAY

REACTIONS (6)
  - Muscle spasticity [None]
  - Device malfunction [None]
  - Lower limb fracture [None]
  - Wound [None]
  - Device power source issue [None]
  - Muscle spasticity [None]
